FAERS Safety Report 9952521 (Version 1)
Quarter: 2014Q1

REPORT INFORMATION
  Report Type: Report from Study
  Country: US (occurrence: US)
  Receive Date: 20140304
  Receipt Date: 20140304
  Transmission Date: 20141002
  Serious: Yes (Hospitalization, Other)
  Sender: FDA-Public Use
  Company Number: US-ABBVIE-13P-163-1071451-00

PATIENT
  Age: 55 Year
  Sex: Female
  Weight: 56.75 kg

DRUGS (13)
  1. HUMIRA [Suspect]
     Indication: PSORIATIC ARTHROPATHY
     Dates: start: 2009
  2. HUMIRA [Suspect]
     Indication: RHEUMATOID ARTHRITIS
  3. CHEMOTHERAPEUTICS [Suspect]
     Indication: NEOPLASM MALIGNANT
     Dates: start: 20130218
  4. CHEMOTHERAPEUTICS [Suspect]
     Dates: start: 20130304
  5. SULFASALAZINE [Concomitant]
     Indication: ARTHRITIS
  6. CALCIUM PLUS VITAMIN D [Concomitant]
     Indication: ROUTINE HEALTH MAINTENANCE
  7. VITAMIN B12 [Concomitant]
     Indication: ROUTINE HEALTH MAINTENANCE
  8. OMEPRAZOLE [Concomitant]
     Indication: GASTROOESOPHAGEAL REFLUX DISEASE
  9. FISH OIL [Concomitant]
     Indication: CARDIAC DISORDER
  10. ONE A DAY ESSENTIAL [Concomitant]
     Indication: ROUTINE HEALTH MAINTENANCE
  11. VITAMIN E [Concomitant]
     Indication: ROUTINE HEALTH MAINTENANCE
  12. VITAMIN B COMPLEX [Concomitant]
     Indication: ROUTINE HEALTH MAINTENANCE
  13. FOLIC ACID [Concomitant]
     Indication: CHEMOTHERAPY

REACTIONS (3)
  - Lung carcinoma cell type unspecified stage I [Recovered/Resolved]
  - Upper respiratory tract infection [Not Recovered/Not Resolved]
  - Neutropenia [Unknown]
